FAERS Safety Report 17820916 (Version 2)
Quarter: 2020Q3

REPORT INFORMATION
  Report Type: Spontaneous
  Country: US (occurrence: US)
  Receive Date: 20200525
  Receipt Date: 20200930
  Transmission Date: 20201102
  Serious: Yes (Other)
  Sender: FDA-Public Use
  Company Number: US-BEH-2020117612

PATIENT
  Age: 52 Year
  Sex: Female

DRUGS (2)
  1. HIZENTRA [Suspect]
     Active Substance: HUMAN IMMUNOGLOBULIN G
     Indication: IMMUNODEFICIENCY COMMON VARIABLE
     Dosage: 12 GRAM, QW
     Route: 058
     Dates: start: 20200506, end: 20200515
  2. HIZENTRA [Suspect]
     Active Substance: HUMAN IMMUNOGLOBULIN G
     Dosage: 12 GRAM, TOT
     Route: 058
     Dates: start: 20200511, end: 20200511

REACTIONS (9)
  - Treatment noncompliance [Unknown]
  - Injection site inflammation [Unknown]
  - Dysphagia [Unknown]
  - Injection site warmth [Unknown]
  - Lip swelling [Unknown]
  - Injection site erythema [Unknown]
  - Swollen tongue [Unknown]
  - Hypersensitivity [Unknown]
  - Adverse reaction [Unknown]

NARRATIVE: CASE EVENT DATE: 20200512
